FAERS Safety Report 18163105 (Version 1)
Quarter: 2020Q3

REPORT INFORMATION
  Report Type: Spontaneous
  Country: JP (occurrence: JP)
  Receive Date: 20200818
  Receipt Date: 20200818
  Transmission Date: 20201103
  Serious: Yes (Other)
  Sender: FDA-Public Use
  Company Number: JP-ACCORD-196018

PATIENT
  Age: 62 Year
  Sex: Male
  Weight: 66.6 kg

DRUGS (2)
  1. TEGAFUR/GIMERACIL/OTERACIL POTASSIUM [Suspect]
     Active Substance: GIMERACIL\OTERACIL\TEGAFUR
     Indication: GASTRIC CANCER STAGE II
     Route: 048
  2. CISPLATIN. [Suspect]
     Active Substance: CISPLATIN
     Indication: GASTRIC CANCER STAGE II

REACTIONS (1)
  - Renal disorder [Unknown]
